FAERS Safety Report 11730715 (Version 1)
Quarter: 2015Q4

REPORT INFORMATION
  Report Type: Spontaneous
  Country: US (occurrence: US)
  Receive Date: 20151112
  Receipt Date: 20151112
  Transmission Date: 20160304
  Serious: No
  Sender: FDA-Public Use
  Company Number: US-AMGEN-USASP2015119721

PATIENT
  Age: 54 Year
  Sex: Female

DRUGS (1)
  1. ENBREL [Suspect]
     Active Substance: ETANERCEPT
     Indication: PSORIATIC ARTHROPATHY
     Dosage: UNK
     Route: 065
     Dates: start: 2013

REACTIONS (7)
  - Localised infection [Unknown]
  - Skin warm [Unknown]
  - Injury [Unknown]
  - Fungal infection [Unknown]
  - Impaired healing [Unknown]
  - Therapeutic response delayed [Unknown]
  - Erythema [Unknown]
